FAERS Safety Report 20453404 (Version 1)
Quarter: 2022Q1

REPORT INFORMATION
  Report Type: Spontaneous
  Country: CN (occurrence: CN)
  Receive Date: 20220210
  Receipt Date: 20220210
  Transmission Date: 20220423
  Serious: Yes (Death, Hospitalization, Other)
  Sender: FDA-Public Use
  Company Number: CN-STRIDES ARCOLAB LIMITED-2022SP001084

PATIENT
  Age: 72 Year
  Sex: Female

DRUGS (4)
  1. PREDNISOLONE [Suspect]
     Active Substance: PREDNISOLONE
     Indication: Behcet^s syndrome
     Dosage: 10 MILLIGRAM PER DAY
     Route: 048
  2. METHOTREXATE [Suspect]
     Active Substance: METHOTREXATE
     Indication: Behcet^s syndrome
     Dosage: 10 MILLIGRAM, ONCE A WEEK
     Route: 048
  3. THALIDOMIDE [Suspect]
     Active Substance: THALIDOMIDE
     Indication: Behcet^s syndrome
     Dosage: 50 MILLIGRAM, (PER DAY)AT BED TIME
     Route: 048
  4. AMLODIPINE [Concomitant]
     Active Substance: AMLODIPINE BESYLATE
     Indication: Hypertension
     Dosage: UNK, RECEIVING IRREGULARLY
     Route: 065

REACTIONS (6)
  - Sepsis [Fatal]
  - Localised infection [Fatal]
  - Staphylococcal infection [Fatal]
  - Bacterial infection [Fatal]
  - Drug ineffective [Unknown]
  - Off label use [Unknown]
